FAERS Safety Report 11211348 (Version 1)
Quarter: 2015Q2

REPORT INFORMATION
  Report Type: Spontaneous
  Country: TR (occurrence: None)
  Receive Date: 20150619
  Receipt Date: 20150619
  Transmission Date: 20150821
  Serious: Yes (Other)
  Sender: FDA-Public Use
  Company Number: PD-NAP-TR-2015-016

PATIENT
  Age: 17 Year
  Sex: Male

DRUGS (3)
  1. NAPROXEN (UNKNOWN) [Suspect]
     Active Substance: NAPROXEN
     Indication: DRUG PROVOCATION TEST
  2. LONG-ACTING BRONCHODILATOR AND BUDESONIDE (UNKNOWN) (BUDESONIDE) [Concomitant]
  3. ASPIRIN. [Suspect]
     Active Substance: ASPIRIN
     Indication: DRUG PROVOCATION TEST

REACTIONS (8)
  - Rhinorrhoea [None]
  - Cough [None]
  - Nasal congestion [None]
  - Flushing [None]
  - Dyspnoea [None]
  - Forced expiratory volume decreased [None]
  - Wheezing [None]
  - Urticaria [None]
